FAERS Safety Report 8504602-2 (Version None)
Quarter: 2012Q3

REPORT INFORMATION
  Report Type: 
  Country: None (occurrence: None)
  Receive Date: 20120711
  Receipt Date: 20120625
  Transmission Date: 20120928
  Serious: Yes (Hospitalization)
  Sender: FDA-Public Use
  Company Number: NL-AMGEN-NLDCT2012036241

PATIENT
  Age: 62 Year
  Sex: Female
  Weight: 73.6 kg

DRUGS (18)
  1. BLINDED DENOSUMAB [Suspect]
     Indication: BREAST CANCER
     Dosage: UNK
     Route: 058
     Dates: start: 20120410
  2. DEXAMETHASONE [Concomitant]
     Indication: PROPHYLAXIS
     Dosage: 8 MG, UNK
     Route: 048
     Dates: start: 20120523
  3. ORAMORPH SR [Concomitant]
     Indication: BONE PAIN
     Dosage: 5 MG, UNK
     Route: 048
     Dates: start: 20120528, end: 20120605
  4. MORPHINE [Concomitant]
     Indication: BONE PAIN
     Dosage: 7.5 MG, UNK
     Route: 058
     Dates: start: 20120528, end: 20120528
  5. FLUOROURACIL [Concomitant]
     Indication: BREAST CANCER
     Dosage: 900 MG, UNK
     Route: 042
     Dates: start: 20120322, end: 20120503
  6. DOCETAXEL [Concomitant]
     Dosage: 180 MG, UNK
     Route: 042
     Dates: start: 20120524
  7. PLACEBO [Suspect]
     Indication: BREAST CANCER
     Dosage: UNK
     Route: 058
     Dates: start: 20120410
  8. NEULASTA [Suspect]
     Indication: PROPHYLAXIS
  9. VITAMIN D [Concomitant]
     Dosage: 800 IU, UNK
     Route: 048
     Dates: start: 20120410
  10. CYCLOPHOSPHAMIDE [Concomitant]
     Indication: BREAST CANCER
     Dosage: 900 MG, UNK
     Route: 042
     Dates: start: 20120322, end: 20120503
  11. GRANISETRON [Concomitant]
     Indication: NAUSEA
     Dosage: 2 MG, UNK
     Route: 048
     Dates: start: 20120322
  12. CALCIUM [Concomitant]
     Dosage: 1200 MUG, UNK
     Route: 048
     Dates: start: 20120410
  13. MOVICOLON [Concomitant]
     Indication: PROPHYLAXIS
  14. NEULASTA [Suspect]
     Indication: FEBRILE NEUTROPENIA
     Dosage: 6 MG, UNK
     Route: 058
     Dates: start: 20120525
  15. EPIRUBICIN [Concomitant]
     Indication: BREAST CANCER
     Dosage: 180 MG, UNK
     Route: 042
     Dates: start: 20120322, end: 20120503
  16. GRANISETRON [Concomitant]
     Indication: PROPHYLAXIS
  17. PANTOPRAZOLE [Concomitant]
     Indication: DYSPEPSIA
     Dosage: 40 MG, UNK
     Route: 048
     Dates: start: 20120515
  18. MOVICOLON [Concomitant]
     Indication: CONSTIPATION
     Dosage: UNK
     Route: 048
     Dates: start: 20120528

REACTIONS (1)
  - TOXIC SKIN ERUPTION [None]
